FAERS Safety Report 5671065-4 (Version None)
Quarter: 2008Q1

REPORT INFORMATION
  Report Type: 
  Country: None (occurrence: None)
  Receive Date: 20080318
  Receipt Date: 20080312
  Transmission Date: 20080703
  Serious: Yes (Other)
  Sender: FDA-Public Use
  Company Number: US-ELI_LILLY_AND_COMPANY-US200803002721

PATIENT
  Age: 55 Year
  Sex: Male
  Weight: 95.238 kg

DRUGS (6)
  1. BYETTA [Suspect]
     Dosage: 10 UG, 2/D
     Route: 058
  2. GLUCOPHAGE [Concomitant]
     Indication: DIABETES MELLITUS
     Dosage: UNK, 2/D
  3. FISH OIL [Concomitant]
  4. NIACIN [Concomitant]
     Dosage: 1000 MG, 2/D
  5. LOPID [Concomitant]
     Dosage: 600 MG, 2/D
  6. IBUPROFEN [Concomitant]
     Dosage: 800 MG, 3/D

REACTIONS (2)
  - GALLBLADDER OPERATION [None]
  - PANCREATITIS [None]
